FAERS Safety Report 25427270 (Version 1)
Quarter: 2025Q2

REPORT INFORMATION
  Report Type: Spontaneous
  Country: US (occurrence: US)
  Receive Date: 20250612
  Receipt Date: 20250612
  Transmission Date: 20250716
  Serious: Yes (Hospitalization, Other)
  Sender: SUNOVION
  Company Number: US-SUMITOMO PHARMA SWITZERLAND GMBH-2025SPA006848

PATIENT

DRUGS (1)
  1. GEMTESA [Suspect]
     Active Substance: VIBEGRON
     Indication: Product used for unknown indication
     Route: 048

REACTIONS (7)
  - Pyrexia [Unknown]
  - Pulmonary pain [Unknown]
  - Blood pressure decreased [Unknown]
  - Abdominal pain lower [Unknown]
  - Urinary retention [Unknown]
  - Urinary bladder haemorrhage [Unknown]
  - Renal disorder [Unknown]
